FAERS Safety Report 4286800-X (Version None)
Quarter: 2004Q1

REPORT INFORMATION
  Report Type: 
  Country: None (occurrence: None)
  Receive Date: 20040206
  Receipt Date: 20030120
  Transmission Date: 20041129
  Serious: Yes (Other)
  Sender: FDA-Public Use
  Company Number: US-ROCHE-329972

PATIENT
  Sex: Female

DRUGS (2)
  1. KLONOPIN [Suspect]
     Route: 048
     Dates: start: 19940615
  2. ASPIRIN [Concomitant]
     Route: 048

REACTIONS (12)
  - ABDOMINAL DISTENSION [None]
  - ANXIETY [None]
  - BLOOD PRESSURE INCREASED [None]
  - BREAST CANCER [None]
  - DEPRESSION [None]
  - DIZZINESS [None]
  - FLUSHING [None]
  - INCREASED BRONCHIAL SECRETION [None]
  - MEMORY IMPAIRMENT [None]
  - PHARMACEUTICAL PRODUCT COMPLAINT [None]
  - RESTLESSNESS [None]
  - VOMITING [None]
